FAERS Safety Report 25372444 (Version 1)
Quarter: 2025Q2

REPORT INFORMATION
  Report Type: Spontaneous
  Country: ES (occurrence: ES)
  Receive Date: 20250529
  Receipt Date: 20250529
  Transmission Date: 20250716
  Serious: Yes (Other)
  Sender: ROCHE
  Company Number: ES-ROCHE-10000208441

PATIENT
  Age: 80 Year
  Sex: Female

DRUGS (2)
  1. FARICIMAB [Suspect]
     Active Substance: FARICIMAB
     Indication: Product used for unknown indication
     Route: 050
  2. AFLIBERCEPT [Concomitant]
     Active Substance: AFLIBERCEPT

REACTIONS (3)
  - Eye inflammation [Unknown]
  - Eye pain [Unknown]
  - Blindness [Unknown]
